FAERS Safety Report 6806621-0 (Version None)
Quarter: 2010Q2

REPORT INFORMATION
  Report Type: 
  Country: None (occurrence: None)
  Receive Date: 20100629
  Receipt Date: 20080515
  Transmission Date: 20101027
  Serious: No
  Sender: FDA-Public Use
  Company Number: US-PFIZER INC-2008024806

PATIENT
  Sex: Female
  Weight: 66.818 kg

DRUGS (1)
  1. XANAX [Suspect]
     Indication: ANXIETY
     Dates: start: 20030101

REACTIONS (4)
  - ANXIETY [None]
  - FEELING ABNORMAL [None]
  - PRODUCT QUALITY ISSUE [None]
  - THERAPEUTIC RESPONSE UNEXPECTED [None]
